FAERS Safety Report 5454818-7 (Version None)
Quarter: 2007Q3

REPORT INFORMATION
  Report Type: 
  Country: None (occurrence: None)
  Receive Date: 20070917
  Receipt Date: 20070905
  Transmission Date: 20080115
  Serious: No
  Sender: FDA-Public Use
  Company Number: US-BOEHRINGER INGELHEIM PHARMACEUTICALS, INC.-2007-BP-20903BP

PATIENT

DRUGS (2)
  1. APTIVUS/RITONAVIR CAPSULES [Suspect]
     Route: 048
  2. FUZEON [Concomitant]

REACTIONS (2)
  - DIARRHOEA [None]
  - VIRAL LOAD INCREASED [None]
